FAERS Safety Report 12196756 (Version 1)
Quarter: 2016Q1

REPORT INFORMATION
  Report Type: Spontaneous
  Country: US (occurrence: US)
  Receive Date: 20160321
  Receipt Date: 20160321
  Transmission Date: 20160526
  Serious: Yes (Death, Other)
  Sender: FDA-Public Use
  Company Number: US-MDT-ADR-2016-00538

PATIENT
  Age: 66 Year
  Sex: Male

DRUGS (3)
  1. MORPHINE DRUG, UNKNOWN [Suspect]
     Active Substance: MORPHINE
     Dosage: 6 MCG/DAY
  2. BUPIVACAINE [Suspect]
     Active Substance: BUPIVACAINE
     Dosage: 10 MCG/DAY
  3. BACLOFEN UNKNOWN [Suspect]
     Active Substance: BACLOFEN
     Indication: MUSCLE SPASTICITY
     Dosage: 3 MCG/DAY

REACTIONS (2)
  - Disease complication [Fatal]
  - Chronic obstructive pulmonary disease [Fatal]
